FAERS Safety Report 6163091-6 (Version None)
Quarter: 2009Q2

REPORT INFORMATION
  Report Type: 
  Country: None (occurrence: None)
  Receive Date: 20090422
  Receipt Date: 20090413
  Transmission Date: 20091009
  Serious: Yes (Hospitalization)
  Sender: FDA-Public Use
  Company Number: SE-JNJFOC-20090404494

PATIENT
  Age: 28 Year
  Sex: Female

DRUGS (2)
  1. ACETAMINOPHEN [Suspect]
     Indication: COUGH
     Route: 048
  2. ACETAMINOPHEN [Suspect]
     Indication: PYREXIA
     Dosage: 4 GRAMS PER DAY (ALLEGED MAXIMUM DOSE), ORAL
     Route: 048

REACTIONS (4)
  - ABDOMINAL PAIN [None]
  - JAUNDICE CHOLESTATIC [None]
  - NAUSEA [None]
  - PRURITUS [None]
